FAERS Safety Report 7389494-X (Version None)
Quarter: 2011Q2

REPORT INFORMATION
  Report Type: 
  Country: None (occurrence: None)
  Receive Date: 20110401
  Receipt Date: 20110309
  Transmission Date: 20111010
  Serious: Yes (Hospitalization, Other)
  Sender: FDA-Public Use
  Company Number: PHEH2005US08928

PATIENT
  Sex: Female
  Weight: 98.866 kg

DRUGS (60)
  1. ZOMETA [Suspect]
     Indication: METASTASES TO BONE
     Dosage: EVERY 6 MONTHS
     Route: 042
     Dates: start: 20030106
  2. TAMOXIFEN CITRATE [Concomitant]
     Dosage: 50MG
  3. ACETAMINOPHEN [Concomitant]
     Dosage: 650MG EVERY FOUR HOURS
     Route: 048
  4. MORPHINE [Concomitant]
     Dosage: 1-2MG EVERY HOUR AS NEEDED
     Route: 042
  5. POTASSIUM [Concomitant]
  6. DARVOCET-N 50 [Concomitant]
  7. HYDROCHLOROTHIAZIDE [Concomitant]
  8. SENNA [Concomitant]
  9. FLEXERIL [Concomitant]
     Dosage: 10 MG, Q8H
     Route: 048
  10. DIOVAN [Suspect]
     Dosage: UNK
  11. VICODIN [Concomitant]
  12. VITAMIN D [Concomitant]
  13. OSCAL 500-D [Concomitant]
  14. CEFAZOLIN [Concomitant]
  15. MACRODANTIN [Concomitant]
     Dosage: 100 MG, Q12H
     Route: 048
  16. OXYCONTIN [Concomitant]
     Dosage: 10 MG, UNK
     Route: 048
  17. AVELOX [Concomitant]
     Dosage: UNK
     Dates: start: 20020130
  18. AROMASIN [Concomitant]
  19. MIRALAX [Concomitant]
  20. MILK OF MAGNESIA TAB [Concomitant]
     Dosage: 30 ML, UNK
     Route: 048
  21. MENTHOL [Concomitant]
     Dosage: 1 DF, UNK
     Route: 048
  22. NEURONTIN [Concomitant]
     Dosage: 100 MG, TID
     Route: 048
  23. ASPIRIN [Concomitant]
     Dosage: 324 MG, QD
     Route: 048
  24. HYDROCODONE BITARTRATE [Concomitant]
  25. FERREX [Concomitant]
  26. TRAZODONE HCL [Concomitant]
  27. URECHOLINE [Concomitant]
  28. STERAPRED [Concomitant]
     Dosage: UNK
     Dates: start: 20020802
  29. PERIOSTAT [Concomitant]
  30. MULTIVITAMIN ^LAPPE^ [Concomitant]
  31. CALCIUM CHLORIDE [Concomitant]
     Dosage: UNK
  32. CATAPRES [Concomitant]
     Dosage: 0.1 MG, Q8H
     Route: 048
  33. BENADRYL [Concomitant]
     Dosage: 25 MG, Q6H
     Route: 048
  34. NITROSTAT [Concomitant]
     Dosage: 0.4 MG, UNK
     Route: 060
  35. DULCOLAX [Concomitant]
     Dosage: 10 MG, UNK
     Route: 048
  36. CIPRO [Concomitant]
     Dosage: 250 MG, Q12H
     Route: 048
  37. LACTULOSE [Concomitant]
     Dosage: 30 ML, UNK
     Route: 048
  38. FEMARA [Concomitant]
     Dates: start: 20060101
  39. AMBIEN [Concomitant]
     Dosage: 5MG ONE HOUR BEFORE HYPERBARICS
     Route: 048
     Dates: start: 20031007
  40. OXYCODONE [Concomitant]
  41. ALEVE [Concomitant]
  42. COLACE [Concomitant]
  43. PPD DISPOSABLE [Concomitant]
  44. METOCLOPRAMIDE [Concomitant]
     Dosage: 10 MG, Q6H
     Route: 048
  45. AREDIA [Suspect]
     Indication: METASTASES TO BONE
     Route: 042
  46. PERCOCET [Concomitant]
     Dosage: 1 OR 2 TABLETS EVERY FOUR HOURS AS NEEDED
     Route: 048
     Dates: start: 20031006
  47. PROMETHAZINE [Concomitant]
  48. FENTANYL [Concomitant]
  49. FLUDROCORTISONE [Concomitant]
  50. AMOXICILLIN [Concomitant]
  51. RADIATION THERAPY [Concomitant]
  52. TRAMADOL [Concomitant]
  53. LORTAB [Concomitant]
  54. OMEPRAZOLE [Concomitant]
  55. BACITRACIN [Concomitant]
     Dosage: 1 DF, BID
     Route: 061
  56. EFFEXOR [Concomitant]
     Indication: ANXIETY
     Dosage: 75 MG, QD
  57. PHENERGAN [Concomitant]
     Dosage: 125MG EVERY 6 HOURS
     Route: 042
     Dates: start: 20031006
  58. FLORINEF [Concomitant]
  59. LEVAQUIN [Concomitant]
  60. DECADRON [Concomitant]

REACTIONS (90)
  - OSTEOMYELITIS [None]
  - ORAL MUCOSAL EXFOLIATION [None]
  - ABSCESS ORAL [None]
  - HAEMANGIOMA OF LIVER [None]
  - PULMONARY MASS [None]
  - RASH PRURITIC [None]
  - RASH MACULAR [None]
  - EAR PAIN [None]
  - MYELOPATHY [None]
  - WALKING AID USER [None]
  - CATARACT [None]
  - PLEURAL EFFUSION [None]
  - ATELECTASIS [None]
  - PROCEDURAL HYPERTENSION [None]
  - SEPSIS [None]
  - PYREXIA [None]
  - METAPLASIA [None]
  - FACET JOINT SYNDROME [None]
  - PRIMARY SEQUESTRUM [None]
  - PERIODONTITIS [None]
  - GASTROINTESTINAL PAIN [None]
  - ERYTHEMA [None]
  - PAIN [None]
  - CHEST PAIN [None]
  - ORTHOSTATIC HYPOTENSION [None]
  - MUSCLE SPASMS [None]
  - FUNGAL INFECTION [None]
  - BACTERIAL INFECTION [None]
  - BONE DISORDER [None]
  - GASTROINTESTINAL DISORDER [None]
  - DYSPNOEA [None]
  - JOINT SWELLING [None]
  - INSOMNIA [None]
  - GAIT DISTURBANCE [None]
  - CHOLELITHIASIS [None]
  - CONSTIPATION [None]
  - SINUSITIS [None]
  - LEUKOCYTOSIS [None]
  - PSEUDOMONAS INFECTION [None]
  - GINGIVITIS [None]
  - DENTURE WEARER [None]
  - FATIGUE [None]
  - CONTUSION [None]
  - ANXIETY [None]
  - INTERVERTEBRAL DISC PROTRUSION [None]
  - ORTHOSIS USER [None]
  - KYPHOSIS [None]
  - SPINAL OSTEOARTHRITIS [None]
  - OSTEOPENIA [None]
  - NEOPLASM MALIGNANT [None]
  - FIBROSIS [None]
  - DENTAL CARIES [None]
  - TOOTH LOSS [None]
  - VAGINAL INFECTION [None]
  - DYSURIA [None]
  - ARTHRALGIA [None]
  - RESPIRATORY DISORDER [None]
  - RASH MACULO-PAPULAR [None]
  - NASAL MUCOSAL DISORDER [None]
  - HAEMORRHOIDS [None]
  - BONE SCAN ABNORMAL [None]
  - SPINAL CORD COMPRESSION [None]
  - URINARY TRACT INFECTION ENTEROCOCCAL [None]
  - PERONEAL NERVE PALSY [None]
  - HAEMATURIA [None]
  - CHRONIC SINUSITIS [None]
  - ANAEMIA [None]
  - OSTEOPOROSIS [None]
  - LACERATION [None]
  - SPINAL COMPRESSION FRACTURE [None]
  - URINARY RETENTION [None]
  - BLADDER TRANSITIONAL CELL CARCINOMA [None]
  - OSTEONECROSIS OF JAW [None]
  - ACTINOMYCOSIS [None]
  - ORAL INFECTION [None]
  - BREATH ODOUR [None]
  - FALL [None]
  - NEURODERMATITIS [None]
  - CHRONIC OBSTRUCTIVE PULMONARY DISEASE [None]
  - OSTEOARTHRITIS [None]
  - HEADACHE [None]
  - BACK PAIN [None]
  - MUSCULAR WEAKNESS [None]
  - GASTRITIS [None]
  - TOOTH DISORDER [None]
  - RIB FRACTURE [None]
  - BLOOD CALCIUM DECREASED [None]
  - WEIGHT DECREASED [None]
  - NEURALGIA [None]
  - VENTRICULAR EXTRASYSTOLES [None]
